FAERS Safety Report 4669612-4 (Version None)
Quarter: 2005Q2

REPORT INFORMATION
  Report Type: 
  Country: None (occurrence: None)
  Receive Date: 20050520
  Receipt Date: 20050509
  Transmission Date: 20051028
  Serious: Yes (Other)
  Sender: FDA-Public Use
  Company Number: 05-20/153-01

PATIENT
  Age: 80 Year
  Sex: Female

DRUGS (3)
  1. CLINDAMYCIN HCL [Suspect]
     Indication: TOOTH INFECTION
     Dosage: 2 TID ORAL
     Route: 048
     Dates: start: 20050502
  2. WELCHOL [Concomitant]
  3. FOSAMAX [Concomitant]

REACTIONS (9)
  - BALANCE DISORDER [None]
  - BRADYPHRENIA [None]
  - DIFFICULTY IN WALKING [None]
  - INSOMNIA [None]
  - MUSCLE SPASMS [None]
  - OEDEMA MOUTH [None]
  - ORAL PAIN [None]
  - PSYCHOMOTOR HYPERACTIVITY [None]
  - SPEECH DISORDER [None]
